FAERS Safety Report 24227025 (Version 1)
Quarter: 2024Q3

REPORT INFORMATION
  Report Type: Spontaneous
  Country: US (occurrence: None)
  Receive Date: 20240819
  Receipt Date: 20240819
  Transmission Date: 20241016
  Serious: Yes (Life-Threatening, Other)
  Sender: Public
  Company Number: None

PATIENT
  Age: 19 Year
  Sex: Female
  Weight: 49.5 kg

DRUGS (2)
  1. DUPIXENT [Suspect]
     Active Substance: DUPILUMAB
     Indication: Eczema
     Dates: start: 20240809, end: 20240809
  2. UNSPECIFIED INGREDIENT [Concomitant]
     Active Substance: UNSPECIFIED INGREDIENT

REACTIONS (15)
  - Injection site swelling [None]
  - Injection site discolouration [None]
  - Eye movement disorder [None]
  - Visual brightness [None]
  - Hypoacusis [None]
  - Flushing [None]
  - Pallor [None]
  - Heart rate irregular [None]
  - Oropharyngeal discomfort [None]
  - Vasoconstriction [None]
  - Headache [None]
  - Chest discomfort [None]
  - Pain [None]
  - Dyspnoea [None]
  - Hypersensitivity [None]

NARRATIVE: CASE EVENT DATE: 20240809
